FAERS Safety Report 5832237-9 (Version None)
Quarter: 2008Q3

REPORT INFORMATION
  Report Type: 
  Country: None (occurrence: None)
  Receive Date: 20080804
  Receipt Date: 20080724
  Transmission Date: 20090109
  Serious: Yes (Hospitalization, Other)
  Sender: FDA-Public Use
  Company Number: US-JNJFOC-20080403883

PATIENT
  Sex: Female
  Weight: 65.77 kg

DRUGS (37)
  1. DURAGESIC-100 [Suspect]
     Dosage: AS NEEDED
     Route: 062
  2. DURAGESIC-100 [Suspect]
     Route: 062
  3. DURAGESIC-100 [Suspect]
     Route: 062
  4. DURAGESIC-100 [Suspect]
     Dosage: TWO 100 UG/HR PATCHES
     Route: 062
  5. DURAGESIC-100 [Suspect]
     Dosage: 100 UG/HR   75 UG/HR
     Route: 062
  6. DURAGESIC-100 [Suspect]
     Dosage: 100 UG/HR 50 UG/HR
     Route: 062
  7. DURAGESIC-100 [Suspect]
     Dosage: 100UG/HR   25 UG/HR
     Route: 062
  8. DURAGESIC-100 [Suspect]
     Route: 062
  9. DURAGESIC-100 [Suspect]
     Route: 062
  10. DURAGESIC-100 [Suspect]
     Route: 062
  11. DURAGESIC-100 [Suspect]
     Indication: BACK PAIN
     Route: 062
  12. VALIUM [Concomitant]
     Route: 048
  13. BACLOFEN [Concomitant]
     Indication: MUSCLE SPASMS
     Route: 048
  14. ZANAFLEX [Concomitant]
     Indication: MUSCLE SPASMS
     Dosage: 4MG EVERY MORNING,  4MG EVERY DAY AT NOON,   16MG EVERY EVENING
     Route: 048
  15. BUPROPION HCL [Concomitant]
     Indication: AFFECTIVE DISORDER
     Route: 048
  16. MORPHINE SULFATE [Concomitant]
     Indication: PAIN
     Route: 048
  17. RANITIDINE HCL [Concomitant]
     Dosage: AT BEDTIME
     Route: 048
  18. NEURONTIN [Concomitant]
     Route: 048
  19. NEURONTIN [Concomitant]
     Dosage: AT BEDTIME
     Route: 048
  20. HIPREX [Concomitant]
     Indication: INFECTION PROPHYLAXIS
     Route: 048
  21. CALCIUM/VITAMIN D [Concomitant]
     Route: 048
  22. ASCORBIC ACID [Concomitant]
     Route: 048
  23. FERROUS SULFATE TAB [Concomitant]
     Route: 048
  24. VITAMIN D [Concomitant]
     Route: 048
  25. THIAMINE HCL [Concomitant]
     Route: 048
  26. FIBERCON [Concomitant]
     Route: 048
  27. AMBIEN [Concomitant]
     Dosage: AS NEEDED
     Route: 048
  28. COLACE [Concomitant]
     Route: 048
  29. IMODIUM [Concomitant]
     Indication: DIARRHOEA
     Route: 048
  30. IBUPROFEN TABLETS [Concomitant]
     Indication: PAIN
     Route: 048
  31. GUAIDEX [Concomitant]
     Indication: COUGH
     Route: 048
  32. ZYRTEC [Concomitant]
     Route: 048
  33. LOMOTIL [Concomitant]
     Route: 048
  34. ALBUTEROL [Concomitant]
     Route: 055
  35. MECLIZINE HCL [Concomitant]
     Route: 048
  36. KEFLEX [Concomitant]
     Dosage: AT BEDTIME
     Route: 048
  37. KEFLEX [Concomitant]
     Indication: INFECTION PROPHYLAXIS
     Route: 048

REACTIONS (10)
  - CARPAL TUNNEL SYNDROME [None]
  - COMA [None]
  - DEPRESSION [None]
  - HYPERSOMNIA [None]
  - INAPPROPRIATE SCHEDULE OF DRUG ADMINISTRATION [None]
  - INTRACRANIAL ANEURYSM [None]
  - OSTEOPOROSIS [None]
  - PNEUMONIA [None]
  - SOMNOLENCE [None]
  - TREATMENT NONCOMPLIANCE [None]
